FAERS Safety Report 5505662-3 (Version None)
Quarter: 2007Q4

REPORT INFORMATION
  Report Type: 
  Country: None (occurrence: None)
  Receive Date: 20071102
  Receipt Date: 20071025
  Transmission Date: 20080405
  Serious: Yes (Hospitalization)
  Sender: FDA-Public Use
  Company Number: IE-ABBOTT-07P-229-0367988-00

PATIENT
  Sex: Female
  Weight: 143 kg

DRUGS (4)
  1. REDUCTIL [Suspect]
     Indication: OBESITY
     Dates: start: 20070302, end: 20070412
  2. REDUCTIL [Suspect]
     Dates: start: 20070202
  3. SALBUTAMOL SULFATE [Concomitant]
     Indication: DRUG USE FOR UNKNOWN INDICATION
  4. MONTELUKAST SODIUM [Concomitant]
     Indication: DRUG USE FOR UNKNOWN INDICATION
     Dates: start: 20070416

REACTIONS (3)
  - ADVERSE DRUG REACTION [None]
  - PALPITATIONS [None]
  - TACHYCARDIA [None]
